FAERS Safety Report 9864960 (Version 2)
Quarter: 2014Q1

REPORT INFORMATION
  Report Type: Spontaneous
  Country: US (occurrence: US)
  Receive Date: 20140203
  Receipt Date: 20140212
  Transmission Date: 20141002
  Serious: Yes (Other)
  Sender: FDA-Public Use
  Company Number: US-AMGEN-USASP2014005598

PATIENT
  Age: 69 Year
  Sex: Male

DRUGS (1)
  1. ENBREL [Suspect]
     Indication: PSORIASIS
     Dosage: 50 MG, QWK
     Route: 065
     Dates: start: 20120901

REACTIONS (1)
  - Psoriasis [Not Recovered/Not Resolved]
